FAERS Safety Report 8168432-6 (Version None)
Quarter: 2012Q1

REPORT INFORMATION
  Report Type: 
  Country: None (occurrence: None)
  Receive Date: 20120222
  Receipt Date: 20120214
  Transmission Date: 20120608
  Serious: Yes (Hospitalization)
  Sender: FDA-Public Use
  Company Number: 2011SP052929

PATIENT
  Age: 76 Year
  Sex: Female

DRUGS (15)
  1. ZOLPIDEM [Concomitant]
  2. TRANEXAMIC ACID [Concomitant]
  3. VALSARTAN [Concomitant]
  4. CLONAZEPAM [Concomitant]
  5. LEVOTHYROXINE SODIUM [Concomitant]
  6. DEXTROMETHORPHAN HYDROBROMIDE [Concomitant]
  7. PAROXETINE HYDROCHLORIDE [Concomitant]
  8. LOXOPROFEN SODIUM [Concomitant]
  9. FUROSEMIDE [Concomitant]
  10. RILMAZAFONE HYDROCHLORIDE [Concomitant]
  11. MIRTAZAPINE [Suspect]
     Indication: DEPRESSION
     Dosage: 15 MG;QD;PO, 7.5 MG;QD;PO
     Route: 048
     Dates: start: 20110708, end: 20110721
  12. MIRTAZAPINE [Suspect]
     Indication: DEPRESSION
     Dosage: 15 MG;QD;PO, 7.5 MG;QD;PO
     Route: 048
     Dates: start: 20110722, end: 20110930
  13. SENNOSIDE [Concomitant]
  14. ETIZOLAM [Concomitant]
  15. CEFDITOREN PIVOXIL [Concomitant]

REACTIONS (5)
  - HEPATITIS [None]
  - UPPER RESPIRATORY TRACT INFLAMMATION [None]
  - ANTINUCLEAR ANTIBODY INCREASED [None]
  - DIZZINESS [None]
  - INCREASED APPETITE [None]
